FAERS Safety Report 5066284-4 (Version None)
Quarter: 2006Q3

REPORT INFORMATION
  Report Type: 
  Country: None (occurrence: None)
  Receive Date: 20060706
  Receipt Date: 20050705
  Transmission Date: 20061208
  Serious: Yes (Hospitalization)
  Sender: FDA-Public Use
  Company Number: 1854

PATIENT
  Age: 87 Year
  Sex: Male
  Weight: 55.7924 kg

DRUGS (3)
  1. AVINZA [Suspect]
     Indication: BACK PAIN
     Dosage: 15 MG DAILY PO
     Route: 048
     Dates: start: 20050126, end: 20050128
  2. ETODOLAC [Concomitant]
  3. PSYLLIUM [Concomitant]

REACTIONS (2)
  - TACHYCARDIA [None]
  - THINKING ABNORMAL [None]
